FAERS Safety Report 4770989-X (Version None)
Quarter: 2005Q3

REPORT INFORMATION
  Report Type: 
  Country: None (occurrence: None)
  Receive Date: 20050915
  Receipt Date: 20050901
  Transmission Date: 20060218
  Serious: Yes (Life-Threatening, Hospitalization)
  Sender: FDA-Public Use
  Company Number: GB-JNJFOC-20050800423

PATIENT
  Sex: Female
  Weight: 90 kg

DRUGS (7)
  1. IMODIUM [Suspect]
     Indication: DIARRHOEA
     Route: 048
  2. GLICLAZIDE [Concomitant]
  3. ATENOLOL [Concomitant]
  4. DOXAZOSIN [Concomitant]
  5. LISINOPRIL [Concomitant]
  6. LEVOTHYROXINE [Concomitant]
  7. METFORMIN [Concomitant]

REACTIONS (1)
  - ANAPHYLACTIC REACTION [None]
